FAERS Safety Report 21437499 (Version 2)
Quarter: 2022Q4

REPORT INFORMATION
  Report Type: Spontaneous
  Country: US (occurrence: US)
  Receive Date: 20221011
  Receipt Date: 20221017
  Transmission Date: 20230112
  Serious: Yes (Hospitalization, Other)
  Sender: FDA-Public Use
  Company Number: US-MLMSERVICE-20220920-3808892-1

PATIENT
  Age: 61 Year
  Sex: Female

DRUGS (6)
  1. OXYCODONE [Suspect]
     Active Substance: OXYCODONE
     Indication: Musculoskeletal pain
     Dosage: UNK
     Route: 065
  2. ACETAMINOPHEN\PROPOXYPHENE HYDROCHLORIDE [Suspect]
     Active Substance: ACETAMINOPHEN\PROPOXYPHENE HYDROCHLORIDE
     Indication: Dysmenorrhoea
     Dosage: UNK
     Route: 065
  3. PROPOXYPHENE HYDROCHLORIDE [Suspect]
     Active Substance: PROPOXYPHENE HYDROCHLORIDE
     Indication: Dysmenorrhoea
     Dosage: UNK
     Route: 065
  4. ACETAMINOPHEN\OXYCODONE HYDROCHLORIDE [Suspect]
     Active Substance: ACETAMINOPHEN\OXYCODONE HYDROCHLORIDE
     Indication: Musculoskeletal pain
     Dosage: UNK
     Route: 065
  5. GABAPENTIN [Concomitant]
     Active Substance: GABAPENTIN
     Indication: Product used for unknown indication
     Dosage: 900 MILLIGRAM (UP TO 900 MG/D)
     Route: 065
  6. GABAPENTIN [Concomitant]
     Active Substance: GABAPENTIN
     Dosage: 900 MILLIGRAM, ONCE A DAY
     Route: 065

REACTIONS (13)
  - Decreased appetite [Recovered/Resolved]
  - Diarrhoea [Recovering/Resolving]
  - Drug withdrawal syndrome [Recovering/Resolving]
  - Fatigue [Recovering/Resolving]
  - Hypokalaemia [Recovering/Resolving]
  - Hypochloraemia [Recovering/Resolving]
  - Insomnia [Recovering/Resolving]
  - Psychotic disorder [Recovering/Resolving]
  - Unmasking of previously unidentified disease [Recovering/Resolving]
  - Depressed mood [Recovering/Resolving]
  - Hypercalcaemia [Recovering/Resolving]
  - Vomiting [Recovering/Resolving]
  - Intentional product misuse [Unknown]
